FAERS Safety Report 20005605 (Version 2)
Quarter: 2021Q4

REPORT INFORMATION
  Report Type: Report from Study
  Country: US (occurrence: US)
  Receive Date: 20211027
  Receipt Date: 20211206
  Transmission Date: 20220303
  Serious: No
  Sender: FDA-Public Use
  Company Number: US-TAKEDA-US202015953

PATIENT
  Age: 28 Year
  Sex: Male

DRUGS (3)
  1. VELAGLUCERASE ALFA [Suspect]
     Active Substance: VELAGLUCERASE ALFA
     Indication: Gaucher^s disease
     Dosage: 21 DOSAGE FORM, MONTHLY
     Route: 042
     Dates: start: 20101109
  2. VELAGLUCERASE ALFA [Suspect]
     Active Substance: VELAGLUCERASE ALFA
     Dosage: UNK UNK, Q2WEEKS
     Route: 065
     Dates: start: 2010
  3. VELAGLUCERASE ALFA [Suspect]
     Active Substance: VELAGLUCERASE ALFA
     Dosage: 15 DOSAGE FORM, Q2WEEKS
     Route: 042
     Dates: start: 20101109

REACTIONS (5)
  - Vascular pain [Unknown]
  - Infusion site swelling [Unknown]
  - COVID-19 [Not Recovered/Not Resolved]
  - Incorrect drug administration rate [Unknown]
  - Product dose omission issue [Unknown]

NARRATIVE: CASE EVENT DATE: 20200507
